FAERS Safety Report 14980544 (Version 1)
Quarter: 2018Q2

REPORT INFORMATION
  Report Type: Report from Study
  Country: BR (occurrence: BR)
  Receive Date: 20180606
  Receipt Date: 20180606
  Transmission Date: 20180711
  Serious: Yes (Hospitalization, Other)
  Sender: FDA-Public Use
  Company Number: PHHY2017BR119630

PATIENT
  Age: 18 Year
  Sex: Female
  Weight: 45 kg

DRUGS (10)
  1. ILARIS [Suspect]
     Active Substance: CANAKINUMAB
     Dosage: EVERY 6 WEEKS
     Route: 058
     Dates: start: 20170809
  2. ILARIS [Suspect]
     Active Substance: CANAKINUMAB
     Dosage: EVERY 6 WEEKS
     Route: 058
     Dates: start: 20180316
  3. ILARIS [Suspect]
     Active Substance: CANAKINUMAB
     Indication: CRYOPYRIN ASSOCIATED PERIODIC SYNDROME
     Dosage: 150 MG, EVERY 8 WEEKS
     Route: 058
     Dates: start: 20170420
  4. ILARIS [Suspect]
     Active Substance: CANAKINUMAB
     Indication: FAMILIAL COLD AUTOINFLAMMATORY SYNDROME
     Dosage: UNK
     Route: 058
     Dates: start: 20170714
  5. DUAL [Concomitant]
     Indication: DEPRESSION
     Dosage: 2 DF, QD
     Route: 048
  6. ILARIS [Suspect]
     Active Substance: CANAKINUMAB
     Dosage: UNK
     Route: 065
     Dates: start: 20180427
  7. METICORTEN [Concomitant]
     Active Substance: PREDNISONE
     Indication: PAIN
     Dosage: (10 TO 60 MG DEPENDING OF INTENSITY OF PAIN) UNK
     Route: 048
     Dates: start: 20170929
  8. PROZAC [Concomitant]
     Active Substance: FLUOXETINE HYDROCHLORIDE
     Indication: DEPRESSION
     Dosage: 3 DF, QD
     Route: 048
  9. STAVIGILE [Concomitant]
     Active Substance: MODAFINIL
     Indication: DEPRESSION
     Dosage: 1 DF, QD
     Route: 048
  10. LYRICA [Concomitant]
     Active Substance: PREGABALIN
     Indication: PAIN
     Dosage: 1 DF, QD
     Route: 048
     Dates: start: 201704

REACTIONS (20)
  - Serum amyloid A protein increased [Unknown]
  - Weight increased [Unknown]
  - Diarrhoea [Unknown]
  - Arthralgia [Unknown]
  - Vomiting [Recovered/Resolved]
  - Injection site pain [Recovered/Resolved]
  - Tremor [Unknown]
  - Abdominal pain [Recovered/Resolved]
  - Drug ineffective [Unknown]
  - Feeling abnormal [Unknown]
  - Chills [Unknown]
  - Fatigue [Unknown]
  - Pain [Not Recovered/Not Resolved]
  - Viral infection [Recovering/Resolving]
  - Abdominal distension [Unknown]
  - Pyrexia [Unknown]
  - Pain of skin [Unknown]
  - C-reactive protein increased [Recovered/Resolved]
  - Malaise [Unknown]
  - Headache [Unknown]

NARRATIVE: CASE EVENT DATE: 201708
